FAERS Safety Report 25796264 (Version 2)
Quarter: 2025Q4

REPORT INFORMATION
  Report Type: Spontaneous
  Country: US (occurrence: US)
  Receive Date: 20250912
  Receipt Date: 20251119
  Transmission Date: 20260117
  Serious: Yes (Other)
  Sender: CATALYST PHARMA
  Company Number: US-CATALYST PHARMACEUTICALS, INC-US-CATA-25-00375

PATIENT
  Age: 65 Year
  Sex: Male
  Weight: 81.633 kg

DRUGS (7)
  1. FIRDAPSE [Suspect]
     Active Substance: AMIFAMPRIDINE PHOSPHATE
     Indication: Myasthenic syndrome
     Dosage: DIVIDED DOSE: 30 MG IN MORNING, 25 MG IN AFTERNOON AND 25 MG IN EVENING
     Route: 048
  2. FIRDAPSE [Suspect]
     Active Substance: AMIFAMPRIDINE PHOSPHATE
     Dosage: 1 (10 MG) TABLET THREE TIMES A DAY
     Route: 048
     Dates: start: 20240905
  3. FIRDAPSE [Suspect]
     Active Substance: AMIFAMPRIDINE PHOSPHATE
     Dosage: 2 TABLETS FOUR TIMES A DAY (80 MG DAILY)
     Route: 048
     Dates: start: 20241029
  4. ALFUZOSIN [Concomitant]
     Active Substance: ALFUZOSIN
     Indication: Benign prostatic hyperplasia
     Dosage: 10 MG
     Route: 065
  5. GABAPENTIN [Concomitant]
     Active Substance: GABAPENTIN
     Indication: Myasthenic syndrome
     Dosage: 300 MG DAILY
     Route: 065
  6. OXYBUTYNIN [Concomitant]
     Active Substance: OXYBUTYNIN
     Indication: Hypertonic bladder
     Dosage: 5 MG THREE TIMES DAILY
     Route: 065
  7. PRIVIGEN [Concomitant]
     Active Substance: HUMAN IMMUNOGLOBULIN G
     Indication: Myasthenic syndrome
     Dosage: 10 G EVERY THREE WEEKS
     Route: 042

REACTIONS (8)
  - Stiff person syndrome [Unknown]
  - Oropharyngeal pain [Unknown]
  - Exaggerated startle response [Unknown]
  - Weight decreased [Unknown]
  - Vomiting [Unknown]
  - Parkinsonism [Not Recovered/Not Resolved]
  - Muscle spasms [Unknown]
  - Constipation [Not Recovered/Not Resolved]

NARRATIVE: CASE EVENT DATE: 20250101
